FAERS Safety Report 22165894 (Version 1)
Quarter: 2023Q2

REPORT INFORMATION
  Report Type: Spontaneous
  Country: SA (occurrence: SA)
  Receive Date: 20230403
  Receipt Date: 20230403
  Transmission Date: 20230722
  Serious: Yes (Hospitalization, Other)
  Sender: FDA-Public Use
  Company Number: SA-RENAUDINFR-2022000959

PATIENT
  Age: 9 Decade
  Sex: Male

DRUGS (10)
  1. FUROSEMIDE [Suspect]
     Active Substance: FUROSEMIDE
     Indication: Cardiac failure
     Dosage: DAY 14
     Route: 048
  2. DEXTROSE [Concomitant]
     Active Substance: DEXTROSE\DEXTROSE MONOHYDRATE
     Indication: Cardiac failure
  3. OXYGEN [Concomitant]
     Active Substance: OXYGEN
     Indication: Oxygen therapy
     Dosage: DELIVERED VIA A VENTURI MASK
  4. OXYGEN [Concomitant]
     Active Substance: OXYGEN
     Indication: Oxygen therapy
  5. OXYGEN [Concomitant]
     Active Substance: OXYGEN
     Indication: Oxygen therapy
  6. FUROSEMIDE [Suspect]
     Active Substance: FUROSEMIDE
     Indication: Hypervolaemia
     Dosage: DAY 5- DAY 13
     Route: 042
  7. FUROSEMIDE [Suspect]
     Active Substance: FUROSEMIDE
     Indication: Cardiac failure
  8. FUROSEMIDE [Suspect]
     Active Substance: FUROSEMIDE
     Indication: Cardiac failure
     Dosage: DAY 3
     Route: 042
  9. FUROSEMIDE [Suspect]
     Active Substance: FUROSEMIDE
     Indication: Cardiac failure
     Dosage: DAY 0-DAY 4
     Route: 042
  10. FUROSEMIDE [Suspect]
     Active Substance: FUROSEMIDE
     Indication: Cardiac failure
     Dosage: DAY 11- DAY 15
     Route: 048

REACTIONS (4)
  - Hypernatraemia [Recovered/Resolved]
  - Renal impairment [Recovered/Resolved]
  - Mental status changes [Recovered/Resolved]
  - Alkalosis hypochloraemic [Recovered/Resolved]
